FAERS Safety Report 10596761 (Version 2)
Quarter: 2014Q4

REPORT INFORMATION
  Report Type: Report from Study
  Country: MX (occurrence: MX)
  Receive Date: 20141120
  Receipt Date: 20141120
  Transmission Date: 20150529
  Serious: Yes (Other)
  Sender: FDA-Public Use
  Company Number: PHHY2014MX123314

PATIENT
  Age: 74 Year
  Sex: Female

DRUGS (3)
  1. ERYTHROMYCIN. [Concomitant]
     Active Substance: ERYTHROMYCIN
     Indication: CARDIAC DISORDER
     Dosage: 1 DF, QD
     Route: 065
  2. CO-DIOVAN [Suspect]
     Active Substance: HYDROCHLOROTHIAZIDE\VALSARTAN
     Indication: CARDIAC DISORDER
     Dosage: 1 DF, QD (IN THE MORNING)
     Route: 048
  3. CARBAMAZEPINE. [Concomitant]
     Active Substance: CARBAMAZEPINE
     Indication: BURNING SENSATION
     Dosage: 1 DF, QD
     Route: 065

REACTIONS (8)
  - Malaise [Not Recovered/Not Resolved]
  - Feeling drunk [Recovering/Resolving]
  - Dizziness [Not Recovered/Not Resolved]
  - Arrhythmia [Unknown]
  - General physical health deterioration [Not Recovered/Not Resolved]
  - Skeletal injury [Unknown]
  - Blood glucose increased [Not Recovered/Not Resolved]
  - Hearing impaired [Not Recovered/Not Resolved]

NARRATIVE: CASE EVENT DATE: 201409
